FAERS Safety Report 24249706 (Version 1)
Quarter: 2024Q3

REPORT INFORMATION
  Report Type: Spontaneous
  Country: US (occurrence: None)
  Receive Date: 20240823
  Receipt Date: 20240823
  Transmission Date: 20241017
  Serious: No
  Sender: Public
  Company Number: None

PATIENT
  Sex: Female

DRUGS (2)
  1. TEMOZOLOMIDE [Suspect]
     Active Substance: TEMOZOLOMIDE
     Indication: Neuroendocrine tumour
     Dosage: FREQ: TAKE 2 CAPSULES (360 MG TOTAL) BY MOUTH AT BEDTIME ON DAYS 10-14 OF EACH 28 DAY CYCLE.
     Route: 048
     Dates: start: 20240629
  2. LUPRON DEPOT [Concomitant]
     Active Substance: LEUPROLIDE ACETATE

REACTIONS (2)
  - Surgery [None]
  - Therapy interrupted [None]
